FAERS Safety Report 8240558-8 (Version None)
Quarter: 2012Q1

REPORT INFORMATION
  Report Type: 
  Country: None (occurrence: None)
  Receive Date: 20120328
  Receipt Date: 20120313
  Transmission Date: 20120608
  Serious: Yes (Death, Hospitalization)
  Sender: FDA-Public Use
  Company Number: ES-CELGENEUS-144-50794-12031533

PATIENT
  Sex: Male
  Weight: 60 kg

DRUGS (10)
  1. OMEPRAZOLE [Concomitant]
     Indication: PROPHYLAXIS
     Dosage: 20 MILLIGRAM
     Route: 065
  2. FLUCONAZOLE [Concomitant]
     Indication: ANTIFUNGAL PROPHYLAXIS
     Dosage: 200 MILLIGRAM
     Route: 065
  3. BUDESONIDE [Concomitant]
     Indication: BRONCHOSPASM
     Dosage: 4 DOSAGE FORMS
     Route: 055
  4. IPRATROPIUM BROMIDE [Concomitant]
     Indication: BRONCHOSPASM
     Dosage: 6 DOSAGE FORMS
     Route: 055
  5. JANUMET [Concomitant]
     Indication: HYPERGLYCAEMIA
     Dosage: 50MG/100MG
     Route: 065
  6. PREDNISONE TAB [Concomitant]
     Indication: BRONCHOSPASM
     Dosage: 10 MILLIGRAM
     Route: 065
  7. ACYCLOVIR [Concomitant]
     Indication: ANTIVIRAL PROPHYLAXIS
     Dosage: 1600 MILLIGRAM
     Route: 065
  8. METOCLOPRAMIDE [Concomitant]
     Indication: ANTIEMETIC SUPPORTIVE CARE
     Dosage: 10 MILLIGRAM
     Route: 065
  9. ATORVASTATIN CALCIUM [Concomitant]
     Indication: DYSLIPIDAEMIA
     Route: 065
  10. VIDAZA [Suspect]
     Indication: ACUTE MYELOID LEUKAEMIA
     Dates: end: 20110801

REACTIONS (2)
  - FEBRILE NEUTROPENIA [None]
  - PNEUMONIA [None]
